FAERS Safety Report 4273759-4 (Version None)
Quarter: 2004Q1

REPORT INFORMATION
  Report Type: 
  Country: None (occurrence: None)
  Receive Date: 20040115
  Receipt Date: 20040106
  Transmission Date: 20041129
  Serious: Yes (Hospitalization)
  Sender: FDA-Public Use
  Company Number: US060348

PATIENT
  Age: 56 Year
  Sex: Female

DRUGS (9)
  1. KINERET [Suspect]
     Indication: RHEUMATOID ARTHRITIS
     Dosage: 100 MG, DAILY, SC
     Route: 058
     Dates: start: 20031002, end: 20031202
  2. CETIRIZINE HYDROCHLORIDE [Concomitant]
  3. RANITIDINE HYDROCHLORIDE [Concomitant]
  4. RISEDRONATE SODIUM [Concomitant]
  5. PREDNISONE [Concomitant]
  6. MULTI-VITAMINS [Concomitant]
  7. PREMARIN WITH METHYLTESTOSTERONE [Concomitant]
  8. VICODIN [Concomitant]
  9. TRAMADOL HYDROCHLORIDE [Concomitant]

REACTIONS (4)
  - ELECTROLYTE IMBALANCE [None]
  - HAEMATOCRIT DECREASED [None]
  - HAEMOGLOBIN DECREASED [None]
  - MENTAL STATUS CHANGES [None]
